FAERS Safety Report 17465197 (Version 1)
Quarter: 2020Q1

REPORT INFORMATION
  Report Type: Report from Study
  Country: None (occurrence: US)
  Receive Date: 20200226
  Receipt Date: 20200226
  Transmission Date: 20200409
  Serious: Yes (Hospitalization, Other)
  Sender: FDA-Public Use
  Company Number: US-ABBVIE-19K-163-2672252-00

PATIENT
  Age: 71 Year
  Sex: Female

DRUGS (2)
  1. HUMIRA [Suspect]
     Active Substance: ADALIMUMAB
     Indication: PSORIATIC ARTHROPATHY
     Route: 058
     Dates: start: 2016, end: 201901
  2. HUMIRA [Suspect]
     Active Substance: ADALIMUMAB
     Route: 058
     Dates: start: 201912

REACTIONS (9)
  - Gait inability [Recovering/Resolving]
  - Lower limb fracture [Recovering/Resolving]
  - Ligament rupture [Recovering/Resolving]
  - Upper limb fracture [Recovering/Resolving]
  - Road traffic accident [Recovering/Resolving]
  - Hip fracture [Recovering/Resolving]
  - Loss of consciousness [Recovered/Resolved]
  - Cystitis [Recovered/Resolved]
  - Dysstasia [Recovering/Resolving]

NARRATIVE: CASE EVENT DATE: 2019
